FAERS Safety Report 23769701 (Version 1)
Quarter: 2024Q2

REPORT INFORMATION
  Report Type: Report from Study
  Country: IL (occurrence: IL)
  Receive Date: 20240422
  Receipt Date: 20240422
  Transmission Date: 20240716
  Serious: Yes (Death)
  Sender: FDA-Public Use
  Company Number: IL-ABBVIE-5729309

PATIENT
  Sex: Male

DRUGS (2)
  1. CARBIDOPA\LEVODOPA [Suspect]
     Active Substance: CARBIDOPA\LEVODOPA
     Indication: Parkinson^s disease
     Dosage: MORNING DOSE 3.0ML, CONTINUOUS DOSE 2.1ML/HOUR, EXTRA DOSE 0.8ML, NIGHT CONTINUOUS DOSAGE 1.3 ML
     Route: 050
     Dates: start: 20201028, end: 202404
  2. CARBIDOPA\LEVODOPA [Suspect]
     Active Substance: CARBIDOPA\LEVODOPA

REACTIONS (2)
  - Pneumothorax [Fatal]
  - Bacterial infection [Fatal]

NARRATIVE: CASE EVENT DATE: 20240101
